FAERS Safety Report 8423045-3 (Version None)
Quarter: 2012Q2

REPORT INFORMATION
  Report Type: 
  Country: None (occurrence: None)
  Receive Date: 20120608
  Receipt Date: 20120601
  Transmission Date: 20120825
  Serious: Yes (Other)
  Sender: FDA-Public Use
  Company Number: JP-JNJFOC-20120601876

PATIENT
  Age: 82 Year
  Sex: Male

DRUGS (3)
  1. MICONAZOLE [Suspect]
     Indication: OESOPHAGEAL CANDIDIASIS
     Route: 049
     Dates: start: 20120514, end: 20120528
  2. WARFARIN SODIUM [Interacting]
     Indication: PRODUCT USED FOR UNKNOWN INDICATION
     Route: 048
  3. MICONAZOLE [Suspect]
     Route: 049

REACTIONS (3)
  - MELAENA [None]
  - DRUG INTERACTION [None]
  - INTERNATIONAL NORMALISED RATIO INCREASED [None]
